FAERS Safety Report 7445298-0 (Version None)
Quarter: 2011Q2

REPORT INFORMATION
  Report Type: 
  Country: None (occurrence: None)
  Receive Date: 20110429
  Receipt Date: 20101213
  Transmission Date: 20111010
  Serious: Yes (Hospitalization)
  Sender: FDA-Public Use
  Company Number: US-BAYER-201021852NA

PATIENT
  Age: 32 Year
  Sex: Female
  Weight: 79.819 kg

DRUGS (6)
  1. NADOLOL [Concomitant]
  2. TRIAMLERENE [Concomitant]
  3. IBUPROF [Concomitant]
  4. NORVASC [Concomitant]
  5. YAZ [Suspect]
     Indication: PRODUCT USED FOR UNKNOWN INDICATION
     Dosage: UNK UNK, QD
     Route: 048
     Dates: start: 20060510, end: 20060627
  6. ACEBUTOLOL [Concomitant]

REACTIONS (3)
  - PORTAL VEIN THROMBOSIS [None]
  - SPLENIC VEIN THROMBOSIS [None]
  - MESENTERIC VEIN THROMBOSIS [None]
